FAERS Safety Report 13227211 (Version 2)
Quarter: 2017Q1

REPORT INFORMATION
  Report Type: Spontaneous
  Country: DE (occurrence: DE)
  Receive Date: 20170213
  Receipt Date: 20170320
  Transmission Date: 20170428
  Serious: Yes (Other)
  Sender: FDA-Public Use
  Company Number: DE-SHIRE-DE201702965

PATIENT
  Age: 10 Year
  Sex: Male
  Weight: 34.4 kg

DRUGS (2)
  1. ELVANSE [Suspect]
     Active Substance: LISDEXAMFETAMINE DIMESYLATE
     Indication: ATTENTION DEFICIT/HYPERACTIVITY DISORDER
     Dosage: 50 MG, 1X/DAY:QD (MORNING)
     Route: 048
     Dates: start: 201501, end: 20170201
  2. RISPERIDONE. [Suspect]
     Active Substance: RISPERIDONE
     Indication: AGGRESSION
     Dosage: 0.5 MG, OTHER (HALF IN MORNING AND EVENING)
     Route: 065
     Dates: start: 201310, end: 20170201

REACTIONS (3)
  - Agitation [Unknown]
  - Mitral valve prolapse [Recovering/Resolving]
  - Sinus tachycardia [Recovered/Resolved]

NARRATIVE: CASE EVENT DATE: 201609
